FAERS Safety Report 9620652 (Version 2)
Quarter: 2013Q4

REPORT INFORMATION
  Report Type: Report from Study
  Country: US (occurrence: US)
  Receive Date: 20131015
  Receipt Date: 20131015
  Transmission Date: 20140711
  Serious: Yes (Other)
  Sender: FDA-Public Use
  Company Number: US-ROCHE-1280708

PATIENT
  Age: 80 Year
  Sex: Female

DRUGS (2)
  1. LUCENTIS [Suspect]
     Indication: MACULAR DEGENERATION
     Route: 065
  2. AVASTIN [Suspect]
     Indication: MACULAR DEGENERATION
     Route: 050

REACTIONS (4)
  - Blindness unilateral [Recovering/Resolving]
  - Suspected transmission of an infectious agent via product [Unknown]
  - Endophthalmitis [Recovering/Resolving]
  - Vitreous floaters [Unknown]
